FAERS Safety Report 4584621-1 (Version None)
Quarter: 2005Q1

REPORT INFORMATION
  Report Type: 
  Country: None (occurrence: None)
  Receive Date: 20050125
  Receipt Date: 20041117
  Transmission Date: 20050727
  Serious: No
  Sender: FDA-Public Use
  Company Number: US_0411108589

PATIENT
  Age: 82 Year
  Sex: Female

DRUGS (18)
  1. FORTEO [Suspect]
     Indication: COMPRESSION FRACTURE
     Dates: start: 20040201
  2. PREDNISONE [Concomitant]
  3. ASPIRIN [Concomitant]
  4. LOPRESSOR [Concomitant]
  5. NEXIUM [Concomitant]
  6. CITRACAL (CALCIUM CITRATE) [Concomitant]
  7. EFFEXOR XR [Concomitant]
  8. FOLIC ACID [Concomitant]
  9. KLONOPIN [Concomitant]
  10. ZETIA [Concomitant]
  11. ALDACTONE [Concomitant]
  12. LASIX [Concomitant]
  13. MIACALCIN [Concomitant]
  14. RISPERDAL [Concomitant]
  15. OXYCONTIN [Concomitant]
  16. DURAGESIC (FENTANYL) [Concomitant]
  17. ULTRAM [Concomitant]
  18. COUMADIN [Concomitant]

REACTIONS (1)
  - FALL [None]
